FAERS Safety Report 16944405 (Version 7)
Quarter: 2021Q1

REPORT INFORMATION
  Report Type: Report from Study
  Country: GB (occurrence: GB)
  Receive Date: 20191022
  Receipt Date: 20210226
  Transmission Date: 20210419
  Serious: Yes (Hospitalization, Other)
  Sender: FDA-Public Use
  Company Number: GB-TEVA-2019-GB-1124303

PATIENT
  Age: 27 Year
  Sex: Female

DRUGS (8)
  1. CIMZIA [Suspect]
     Active Substance: CERTOLIZUMAB PEGOL
     Dosage: 200 MG, CYCLIC ((EVERY 2 WEEKS))
     Route: 058
  2. METHOTREXATE. [Suspect]
     Active Substance: METHOTREXATE
     Indication: PRODUCT USED FOR UNKNOWN INDICATION
     Dosage: UNK
     Route: 065
  3. CIMZIA [Suspect]
     Active Substance: CERTOLIZUMAB PEGOL
     Dosage: 200 MG, CYCLIC ((EVERY 2 WEEKS))
     Route: 058
     Dates: start: 20180430
  4. CIMZIA [Suspect]
     Active Substance: CERTOLIZUMAB PEGOL
     Indication: PSORIATIC ARTHROPATHY
     Dosage: 200 MG, CYCLIC ((EVERY 2 WEEKS))
     Route: 058
     Dates: start: 20200815, end: 2020
  5. CIMZIA [Suspect]
     Active Substance: CERTOLIZUMAB PEGOL
     Indication: RHEUMATOID ARTHRITIS
     Dosage: 200 MG, CYCLIC (200 MILLIGRAM, EV 2 WEEKS(QOW) (EVERY 2 WEEKS))
     Route: 058
     Dates: start: 20180508
  6. COLECALCIFEROL [Concomitant]
     Active Substance: CHOLECALCIFEROL
     Indication: PRODUCT USED FOR UNKNOWN INDICATION
     Route: 065
  7. ERGOCALCIFEROL. [Concomitant]
     Active Substance: ERGOCALCIFEROL
     Indication: PRODUCT USED FOR UNKNOWN INDICATION
  8. FOLIC ACID. [Concomitant]
     Active Substance: FOLIC ACID
     Indication: PRODUCT USED FOR UNKNOWN INDICATION

REACTIONS (20)
  - Ear infection [Recovering/Resolving]
  - Eating disorder [Unknown]
  - Nasopharyngitis [Recovering/Resolving]
  - Skin exfoliation [Unknown]
  - Maternal exposure during breast feeding [Unknown]
  - Product dose omission issue [Unknown]
  - Inappropriate schedule of product administration [Unknown]
  - Diarrhoea [Recovering/Resolving]
  - Headache [Unknown]
  - Infection [Not Recovered/Not Resolved]
  - Poor quality sleep [Unknown]
  - Cough [Unknown]
  - Candida infection [Unknown]
  - Emotional disorder [Unknown]
  - Alopecia [Unknown]
  - Arthritis [Unknown]
  - Oropharyngeal pain [Recovering/Resolving]
  - Illness [Unknown]
  - Bacterial vaginosis [Unknown]
  - Maternal exposure before pregnancy [Recovered/Resolved]

NARRATIVE: CASE EVENT DATE: 201812
